FAERS Safety Report 11258283 (Version 3)
Quarter: 2015Q3

REPORT INFORMATION
  Report Type: Spontaneous
  Country: JP (occurrence: JP)
  Receive Date: 20150710
  Receipt Date: 20150818
  Transmission Date: 20151125
  Serious: Yes (Hospitalization)
  Sender: FDA-Public Use
  Company Number: JP-UCBSA-2015016925

PATIENT
  Age: 81 Year
  Sex: Male

DRUGS (12)
  1. NEUPRO [Suspect]
     Active Substance: ROTIGOTINE
     Dosage: 1 MG STRENGTH
     Route: 062
     Dates: start: 20150501, end: 20150521
  2. NEUPRO [Suspect]
     Active Substance: ROTIGOTINE
     Dosage: 1 MG AND 6 MG STRENGTH
     Route: 062
     Dates: start: 20150529, end: 20150615
  3. NEODOPASTON [Concomitant]
     Active Substance: CARBIDOPA\LEVODOPA
     Indication: PRODUCT USED FOR UNKNOWN INDICATION
     Dosage: 100 MG
     Dates: start: 20150311
  4. EURAX H [Concomitant]
     Indication: PRODUCT USED FOR UNKNOWN INDICATION
     Dosage: UNK
     Dates: start: 20150415, end: 20150521
  5. NEUPRO [Suspect]
     Active Substance: ROTIGOTINE
     Dosage: 6 MG STRENGTH
     Route: 062
     Dates: start: 20150401, end: 20150521
  6. MAGMITT [Concomitant]
     Active Substance: MAGNESIUM OXIDE
     Indication: PRODUCT USED FOR UNKNOWN INDICATION
     Dosage: 500 MG
     Dates: start: 20150311
  7. NEUPRO [Suspect]
     Active Substance: ROTIGOTINE
     Indication: PARKINSON^S DISEASE
     Dosage: 1 MG STRENGTH
     Route: 062
     Dates: start: 20150325, end: 20150407
  8. ALDACTONE A [Concomitant]
     Active Substance: SPIRONOLACTONE
     Indication: PRODUCT USED FOR UNKNOWN INDICATION
     Dosage: 25 MG
     Dates: start: 20150311, end: 20150615
  9. RISUMIC [Concomitant]
     Active Substance: AMEZINIUM METILSULFATE
     Indication: PRODUCT USED FOR UNKNOWN INDICATION
     Dosage: 10 MG
     Dates: start: 20150508, end: 20150514
  10. AMEZINIUM METILSULFATE [Concomitant]
     Active Substance: AMEZINIUM METILSULFATE
     Indication: ORTHOSTATIC HYPOTENSION
     Dosage: UNK
     Dates: start: 20150508
  11. CYMBALTA [Concomitant]
     Active Substance: DULOXETINE HYDROCHLORIDE
     Indication: PRODUCT USED FOR UNKNOWN INDICATION
     Dosage: HARD: 25 MG
     Dates: start: 20150501, end: 20150521
  12. DOPASTON [Concomitant]
     Active Substance: LEVODOPA
     Indication: PRODUCT USED FOR UNKNOWN INDICATION

REACTIONS (5)
  - Pneumonia aspiration [Recovered/Resolved with Sequelae]
  - Hypophagia [Unknown]
  - Depressed level of consciousness [Unknown]
  - Orthostatic hypotension [Recovered/Resolved]
  - Constipation [Unknown]

NARRATIVE: CASE EVENT DATE: 20150507
